FAERS Safety Report 13332346 (Version 5)
Quarter: 2020Q1

REPORT INFORMATION
  Report Type: Report from Study
  Country: CN (occurrence: CN)
  Receive Date: 20170314
  Receipt Date: 20200106
  Transmission Date: 20200409
  Serious: Yes (Other)
  Sender: FDA-Public Use
  Company Number: PHHY2015CN170041

PATIENT
  Age: 37 Year
  Sex: Male

DRUGS (160)
  1. MYFORTIC [Suspect]
     Active Substance: MYCOPHENOLATE SODIUM
     Dosage: 720 MG, QD
     Route: 065
     Dates: start: 20160112
  2. MAGNESIN//MAGNESIUM SULFATE [Concomitant]
     Indication: ELECTROLYTE IMBALANCE
     Dosage: 1.6 ML, QD
     Route: 042
     Dates: start: 20151014, end: 20151014
  3. SODIUM BICARBONATE. [Concomitant]
     Active Substance: SODIUM BICARBONATE
     Indication: URINE ALKALINISATION THERAPY
     Dosage: 250 ML, QD
     Route: 042
     Dates: start: 20151103, end: 20151104
  4. SODIUM BICARBONATE. [Concomitant]
     Active Substance: SODIUM BICARBONATE
     Dosage: 250 ML, PRN
     Route: 042
     Dates: start: 20151204, end: 20151204
  5. SODIUM BICARBONATE. [Concomitant]
     Active Substance: SODIUM BICARBONATE
     Indication: URINE ALKALINISATION THERAPY
  6. AARAM//ALPRAZOLAM [Concomitant]
     Dosage: 0.4 MG, QD
     Route: 048
     Dates: start: 20151015
  7. PMS-PROMETHAZINE [Concomitant]
     Dosage: 2 DF, TID
     Route: 048
     Dates: start: 20151205, end: 20151219
  8. SULFAMETHOXAZOLE [Concomitant]
     Active Substance: SULFAMETHOXAZOLE
     Dosage: 240 MG, PRN
     Route: 048
     Dates: start: 20151219
  9. FUROSEMIDE. [Concomitant]
     Active Substance: FUROSEMIDE
     Indication: PROPHYLAXIS
     Dosage: 40 MG, QD
     Route: 042
     Dates: start: 20150906, end: 20150906
  10. FUROSEMIDE. [Concomitant]
     Active Substance: FUROSEMIDE
     Dosage: 80 MG, QD
     Route: 042
     Dates: start: 20151014, end: 20151014
  11. FUROSEMIDE. [Concomitant]
     Active Substance: FUROSEMIDE
     Dosage: 80 MG, QD
     Route: 042
     Dates: start: 20151103, end: 20151103
  12. FUROSEMIDE. [Concomitant]
     Active Substance: FUROSEMIDE
     Dosage: 40 MG, QD
     Route: 042
     Dates: start: 20151206, end: 20151209
  13. FUROSEMIDE. [Concomitant]
     Active Substance: FUROSEMIDE
     Dosage: 20 MG, QD
     Route: 042
     Dates: start: 20151215, end: 20151216
  14. TALCID [Concomitant]
     Active Substance: HYDROTALCITE
     Indication: ANTACID THERAPY
     Dosage: 1000 MG, QD
     Route: 048
     Dates: start: 20150909
  15. TALCID [Concomitant]
     Active Substance: HYDROTALCITE
     Indication: PROPHYLAXIS
     Dosage: 1000 MG, QD
     Route: 048
     Dates: start: 20151015
  16. TEICOPLANIN [Concomitant]
     Active Substance: TEICOPLANIN
     Indication: INFECTION PROPHYLAXIS
     Dosage: 200 MG, QD
     Route: 042
     Dates: start: 20150902, end: 20150908
  17. HEPARIN SODIUM. [Concomitant]
     Active Substance: HEPARIN SODIUM
     Indication: RENAL DISORDER
     Dosage: 12500 IU, W2D2
     Route: 042
     Dates: start: 20151105
  18. IMIPENEM/CILASTATINE [Concomitant]
     Active Substance: CILASTATIN SODIUM\IMIPENEM
     Dosage: 500 MG, Q8H
     Route: 042
     Dates: start: 20151014, end: 20151020
  19. IMIPENEM/CILASTATINE [Concomitant]
     Active Substance: CILASTATIN SODIUM\IMIPENEM
     Dosage: 500 MG, Q8H
     Route: 042
     Dates: start: 20151103, end: 20151107
  20. LOSEC                                   /CAN/ [Concomitant]
     Indication: ANTACID THERAPY
     Dosage: 40 MG, QD
     Route: 048
     Dates: start: 20151015
  21. ALIN//DEXAMETHASONE [Concomitant]
     Dosage: 10 MG, QD
     Route: 042
     Dates: start: 20151204, end: 20151204
  22. COMPOUND SODIUM CHLORIDE           /06440701/ [Concomitant]
     Indication: FLUID REPLACEMENT
     Dosage: 500 MG, QD
     Route: 042
     Dates: start: 20151103
  23. LEVOFLOXACIN. [Concomitant]
     Active Substance: LEVOFLOXACIN
     Indication: INFECTION PROPHYLAXIS
     Dosage: 500 MG, QD
     Route: 042
     Dates: start: 20151107
  24. NIFEDIPINE. [Concomitant]
     Active Substance: NIFEDIPINE
     Indication: BLOOD PRESSURE INCREASED
     Dosage: 10 MG, QD
     Route: 048
     Dates: start: 20151108, end: 20151110
  25. GLUCOSE [Concomitant]
     Active Substance: DEXTROSE
     Indication: HAEMODIALYSIS
     Dosage: 20 G, QD
     Route: 042
     Dates: start: 20151210, end: 20151210
  26. ENEMA (SODIUM PHOSPHATE, DIBASIC\SODIUM PHOSPHATE, MONOBASIC) [Concomitant]
     Active Substance: SODIUM PHOSPHATE, DIBASIC\SODIUM PHOSPHATE, MONOBASIC
     Dosage: 60 ML, PRN
     Route: 054
     Dates: start: 20151212, end: 20151212
  27. BASILIXIMAB [Suspect]
     Active Substance: BASILIXIMAB
     Indication: RENAL TRANSPLANT
     Dosage: 20 MG, QD
     Route: 065
     Dates: start: 20151204, end: 20151204
  28. TACROLIMUS. [Suspect]
     Active Substance: TACROLIMUS
     Dosage: 2 MG, QD
     Route: 065
     Dates: start: 20151229, end: 20160111
  29. PREDNISONE. [Suspect]
     Active Substance: PREDNISONE
     Indication: IMMUNOSUPPRESSANT DRUG THERAPY
     Dosage: 20 MG, QD
     Route: 065
     Dates: start: 20151219, end: 20151221
  30. PREDNISONE. [Suspect]
     Active Substance: PREDNISONE
     Dosage: 15 MG, QD
     Route: 065
     Dates: start: 20151222, end: 20160111
  31. MANNITOL. [Concomitant]
     Active Substance: MANNITOL
     Dosage: 125 ML, QD
     Route: 042
     Dates: start: 20151014, end: 20151014
  32. MANNITOL. [Concomitant]
     Active Substance: MANNITOL
     Dosage: 125 ML, SOS
     Route: 042
     Dates: start: 20151103, end: 20151103
  33. MAGNESIN//MAGNESIUM SULFATE [Concomitant]
     Dosage: 3.2 ML, QD
     Route: 042
     Dates: start: 20151103, end: 20151104
  34. MAGNESIN//MAGNESIUM SULFATE [Concomitant]
     Dosage: 4.8 ML, QD
     Route: 042
     Dates: start: 20151106, end: 20151106
  35. SODIUM BICARBONATE. [Concomitant]
     Active Substance: SODIUM BICARBONATE
     Indication: PROPHYLAXIS
     Dosage: 1000 MG, PRN
     Route: 048
     Dates: start: 20151219
  36. AARAM//ALPRAZOLAM [Concomitant]
     Dosage: 0.4 MG, QN
     Route: 048
     Dates: start: 20151104
  37. DILTIAZEM HYDROCHLORIDE. [Concomitant]
     Active Substance: DILTIAZEM HYDROCHLORIDE
     Dosage: 30 MG, BID
     Route: 048
     Dates: start: 20151015
  38. GANCICLOVIR. [Concomitant]
     Active Substance: GANCICLOVIR
     Indication: ANTIVIRAL TREATMENT
     Dosage: 500 MG, PRN
     Route: 048
     Dates: start: 20151219
  39. TALCID [Concomitant]
     Active Substance: HYDROTALCITE
     Dosage: 1000 MG, QD
     Route: 048
     Dates: start: 20151205
  40. HEPARIN SODIUM. [Concomitant]
     Active Substance: HEPARIN SODIUM
     Indication: THROMBOSIS PROPHYLAXIS
     Dosage: 12500 IU, QD
     Route: 042
     Dates: start: 20150903, end: 20150908
  41. SUCRALFATE. [Concomitant]
     Active Substance: SUCRALFATE
     Dosage: 750 MG, UNK
     Route: 048
     Dates: start: 20151204, end: 20151204
  42. CALCIUM GLUCONATE. [Concomitant]
     Active Substance: CALCIUM GLUCONATE
     Indication: ELECTROLYTE IMBALANCE
     Dosage: 3 G, QD
     Route: 042
     Dates: start: 20150902, end: 20150903
  43. INSULIN [Concomitant]
     Active Substance: INSULIN NOS
     Indication: PROPHYLAXIS
     Dosage: 12 IU, QD
     Route: 042
     Dates: start: 20150901, end: 20150902
  44. INSULIN [Concomitant]
     Active Substance: INSULIN NOS
     Dosage: 6 IU, QD
     Route: 042
     Dates: start: 20151205, end: 20151205
  45. CEFOPERAZONE W/SULBACTAM SODIUM [Concomitant]
     Dosage: 2 G, Q8H
     Route: 042
     Dates: start: 20151107
  46. FELODIPINE. [Concomitant]
     Active Substance: FELODIPINE
     Indication: BLOOD PRESSURE INCREASED
     Dosage: 5 MG, QD
     Route: 048
     Dates: start: 20151110
  47. MACROGOL 4000 [Concomitant]
     Active Substance: POLYETHYLENE GLYCOL 4000
     Dosage: 10 G, BID
     Route: 048
     Dates: start: 20151209, end: 20151215
  48. GLUCOSE [Concomitant]
     Active Substance: DEXTROSE
     Dosage: 1000 ML, QD
     Route: 042
     Dates: start: 20151205, end: 20151205
  49. ENEMA (SODIUM PHOSPHATE, DIBASIC\SODIUM PHOSPHATE, MONOBASIC) [Concomitant]
     Active Substance: SODIUM PHOSPHATE, DIBASIC\SODIUM PHOSPHATE, MONOBASIC
     Dosage: 20 ML, PRN
     Route: 054
     Dates: start: 20151206, end: 20151206
  50. SODIUM PHOSPHATE [Concomitant]
     Active Substance: SODIUM PHOSPHATE
     Indication: GASTRIC LAVAGE
     Dosage: 133 ML, PRN
     Route: 042
     Dates: start: 20151204, end: 20151204
  51. TACROLIMUS. [Suspect]
     Active Substance: TACROLIMUS
     Dosage: 6 MG, QD
     Route: 065
     Dates: start: 20151208, end: 20151217
  52. METHYLPREDNISOLONE. [Suspect]
     Active Substance: METHYLPREDNISOLONE
     Dosage: 660 MG, QD
     Route: 065
     Dates: start: 20151205, end: 20151205
  53. PREDNISONE. [Suspect]
     Active Substance: PREDNISONE
     Dosage: 10 MG, QD
     Route: 065
     Dates: start: 20160112
  54. SODIUM CHLORIDE. [Concomitant]
     Active Substance: SODIUM CHLORIDE
     Indication: PROPHYLAXIS
     Dosage: 12 ML, QD
     Route: 042
     Dates: start: 20150901, end: 20150902
  55. MANNITOL. [Concomitant]
     Active Substance: MANNITOL
     Dosage: 125 ML, UNK
     Route: 042
     Dates: start: 20151204, end: 20151204
  56. AMIKACIN. [Concomitant]
     Active Substance: AMIKACIN
     Indication: PROPHYLAXIS
     Dosage: 400 MG, QD
     Route: 042
     Dates: start: 20150901, end: 20150901
  57. AMIKACIN. [Concomitant]
     Active Substance: AMIKACIN
     Dosage: 400 MG, PRN
     Route: 042
     Dates: start: 20151204, end: 20151204
  58. DILTIAZEM HYDROCHLORIDE. [Concomitant]
     Active Substance: DILTIAZEM HYDROCHLORIDE
     Dosage: 30 MG, BID
     Route: 048
     Dates: start: 20151104
  59. FUROSEMIDE. [Concomitant]
     Active Substance: FUROSEMIDE
     Dosage: 40 MG, QD
     Route: 042
     Dates: start: 20151107, end: 20151107
  60. FUROSEMIDE. [Concomitant]
     Active Substance: FUROSEMIDE
     Dosage: 20 MG, BID
     Route: 042
     Dates: start: 20151205, end: 20151206
  61. METOCLOPRAMIDE. [Concomitant]
     Active Substance: METOCLOPRAMIDE
     Indication: ANTIEMETIC SUPPORTIVE CARE
     Dosage: 10 MG, QD
     Route: 030
     Dates: start: 20150903, end: 20150903
  62. DIAZEPAM. [Concomitant]
     Active Substance: DIAZEPAM
     Dosage: 5 MG, QD
     Route: 048
     Dates: start: 20151103, end: 20151103
  63. HEPATITIS B IMMUNE GLOBULIN [Concomitant]
     Active Substance: HUMAN HEPATITIS B VIRUS IMMUNE GLOBULIN
     Indication: INFECTION PROPHYLAXIS
     Dosage: 400 IU, QD
     Route: 030
     Dates: start: 20151014, end: 20151020
  64. INSULIN [Concomitant]
     Active Substance: INSULIN NOS
     Dosage: 12 IU, QD
     Route: 042
     Dates: start: 20151204, end: 20151205
  65. AMPHOTERICIN B, LIPOSOME [Concomitant]
     Active Substance: AMPHOTERICIN B
     Indication: INFECTION PROPHYLAXIS
     Dosage: 10 MG, QD
     Route: 042
     Dates: start: 20151015
  66. LOSEC                                   /CAN/ [Concomitant]
     Indication: PROPHYLAXIS
  67. ALIN//DEXAMETHASONE [Concomitant]
     Indication: PROPHYLAXIS
     Dosage: 10 MG, QD
     Route: 042
     Dates: start: 20151014, end: 20151014
  68. ALIN//DEXAMETHASONE [Concomitant]
     Dosage: 10 MG, SOS
     Route: 042
     Dates: start: 20151103, end: 20151103
  69. ALPROSTADIL. [Concomitant]
     Active Substance: ALPROSTADIL
     Dosage: 20 UG, QD
     Route: 042
     Dates: start: 20151208, end: 20151219
  70. LOSEC                                   /CAN/ [Concomitant]
     Indication: PROPHYLAXIS
  71. VITAMIN B4 [Concomitant]
     Indication: WHITE BLOOD CELL DISORDER
     Dosage: 20 MG, TID
     Route: 048
     Dates: start: 20151208, end: 20151216
  72. CRAVIT [Concomitant]
     Active Substance: LEVOFLOXACIN
     Indication: INFECTION
     Dosage: 500 MG, QD
     Route: 048
     Dates: start: 20161213
  73. MYFORTIC [Suspect]
     Active Substance: MYCOPHENOLATE SODIUM
     Indication: RENAL TRANSPLANT
     Dosage: 2160 MG, QD
     Route: 065
     Dates: start: 20151205, end: 20151209
  74. TACROLIMUS. [Suspect]
     Active Substance: TACROLIMUS
     Indication: RENAL TRANSPLANT
     Dosage: 7 MG, QD
     Route: 065
     Dates: start: 20151205, end: 20151207
  75. METHYLPREDNISOLONE. [Suspect]
     Active Substance: METHYLPREDNISOLONE
     Indication: RENAL TRANSPLANT
     Dosage: 780 MG, QD
     Route: 065
     Dates: start: 20151204, end: 20151204
  76. METHYLPREDNISOLONE. [Suspect]
     Active Substance: METHYLPREDNISOLONE
     Dosage: 40 MG, QD
     Route: 065
     Dates: start: 20151208, end: 20151219
  77. MANNITOL. [Concomitant]
     Active Substance: MANNITOL
     Indication: PROPHYLAXIS
     Dosage: 125 ML, SOS
     Route: 042
     Dates: start: 20150901, end: 20150901
  78. MAGNESIN//MAGNESIUM SULFATE [Concomitant]
     Indication: PROPHYLAXIS
     Dosage: 3.2 ML, QD
     Route: 042
     Dates: start: 20150901, end: 20150902
  79. SODIUM BICARBONATE. [Concomitant]
     Active Substance: SODIUM BICARBONATE
     Indication: ELECTROLYTE IMBALANCE
     Dosage: 125 ML, QD
     Route: 042
     Dates: start: 20151014, end: 20151014
  80. FUROSEMIDE. [Concomitant]
     Active Substance: FUROSEMIDE
     Dosage: 20 MG, QD
     Route: 042
     Dates: start: 20151015, end: 20151015
  81. FUROSEMIDE. [Concomitant]
     Active Substance: FUROSEMIDE
     Dosage: 40 MG, QD
     Route: 042
     Dates: start: 20151018, end: 20151019
  82. FUROSEMIDE. [Concomitant]
     Active Substance: FUROSEMIDE
     Dosage: 40 MG, QD
     Route: 042
     Dates: start: 20151211, end: 20151215
  83. OMEPRAZOLE. [Concomitant]
     Active Substance: OMEPRAZOLE
     Indication: ANTACID THERAPY
     Dosage: 40 MG, QD
     Route: 042
     Dates: start: 20150902, end: 20150908
  84. HEPARIN SODIUM. [Concomitant]
     Active Substance: HEPARIN SODIUM
     Indication: ANTICOAGULANT THERAPY
     Dosage: 12500 IU, W2D4
     Route: 042
     Dates: start: 20151016
  85. CALCIUM GLUCONATE. [Concomitant]
     Active Substance: CALCIUM GLUCONATE
     Dosage: 2 G, QD
     Route: 042
     Dates: start: 20151216, end: 20151218
  86. TIGECYCLINE. [Concomitant]
     Active Substance: TIGECYCLINE
     Indication: INFECTION PROPHYLAXIS
     Dosage: 100 MG, Q12H
     Route: 042
     Dates: start: 20151019
  87. ALPROSTADIL. [Concomitant]
     Active Substance: ALPROSTADIL
     Indication: VASODILATATION
     Dosage: 20 UG, QD
     Route: 042
     Dates: start: 20151110
  88. LOSEC                                   /CAN/ [Concomitant]
     Indication: ANTACID THERAPY
     Dosage: 40 MG, QD
     Route: 042
     Dates: start: 20151104
  89. VITA K1 [Concomitant]
     Indication: HAEMORRHAGE PROPHYLAXIS
     Dosage: 30 MG, QD
     Route: 042
     Dates: start: 20151107
  90. ENEMA (SODIUM PHOSPHATE, DIBASIC\SODIUM PHOSPHATE, MONOBASIC) [Concomitant]
     Active Substance: SODIUM PHOSPHATE, DIBASIC\SODIUM PHOSPHATE, MONOBASIC
     Dosage: 40 ML, PRN
     Route: 054
     Dates: start: 20151209, end: 20151210
  91. MYFORTIC [Suspect]
     Active Substance: MYCOPHENOLATE SODIUM
     Indication: DELAYED GRAFT FUNCTION
     Dosage: 1080 MG, QD
     Route: 065
     Dates: start: 20151210, end: 20160111
  92. TACROLIMUS. [Suspect]
     Active Substance: TACROLIMUS
     Dosage: 4 MG, QD
     Route: 065
     Dates: start: 20151222, end: 20151228
  93. MAGNESIN//MAGNESIUM SULFATE [Concomitant]
     Dosage: 3.2 ML, PRN
     Route: 042
     Dates: start: 20151204, end: 20151204
  94. SODIUM BICARBONATE. [Concomitant]
     Active Substance: SODIUM BICARBONATE
     Indication: ANTACID THERAPY
     Dosage: 1000 MG, BID
     Route: 048
     Dates: start: 20150909
  95. AARAM//ALPRAZOLAM [Concomitant]
     Dosage: 0.4 MG, QN
     Route: 048
     Dates: start: 20151205, end: 20151219
  96. PMS-PROMETHAZINE [Concomitant]
     Dosage: 2 DF, TID
     Route: 048
     Dates: start: 20151015
  97. OMEPRAZOLE. [Concomitant]
     Active Substance: OMEPRAZOLE
     Indication: PROPHYLAXIS
     Dosage: 40 MG, QD
     Route: 042
     Dates: start: 20151205, end: 20151219
  98. DIAZEPAM. [Concomitant]
     Active Substance: DIAZEPAM
     Indication: PROPHYLAXIS
     Dosage: 5 MG, SOS
     Route: 048
     Dates: start: 20150901, end: 20150901
  99. DIAZEPAM. [Concomitant]
     Active Substance: DIAZEPAM
     Dosage: 5 MG, QD
     Route: 048
     Dates: start: 20151204, end: 20151204
  100. HEPARIN SODIUM. [Concomitant]
     Active Substance: HEPARIN SODIUM
     Dosage: 12500 IU, W2D6
     Route: 042
     Dates: start: 20151206, end: 20151207
  101. CASPOFUNGIN ACETATE. [Concomitant]
     Active Substance: CASPOFUNGIN ACETATE
     Dosage: 50 MG, QD
     Route: 042
     Dates: start: 20151205, end: 20151213
  102. IMIPENEM/CILASTATINE [Concomitant]
     Active Substance: CILASTATIN SODIUM\IMIPENEM
     Dosage: 500 MG, Q8H
     Route: 042
     Dates: start: 20151205, end: 20151213
  103. INSULIN [Concomitant]
     Active Substance: INSULIN NOS
     Indication: ELECTROLYTE IMBALANCE
     Dosage: 6 IU, QD
     Route: 042
     Dates: start: 20151014, end: 20151014
  104. INSULIN [Concomitant]
     Active Substance: INSULIN NOS
     Dosage: 18 IU, QD
     Route: 042
     Dates: start: 20151106, end: 20151106
  105. CEFOPERAZONE W/SULBACTAM SODIUM [Concomitant]
     Indication: INFECTION PROPHYLAXIS
     Dosage: 2000 MG, Q8H
     Route: 042
     Dates: start: 20151020
  106. POTASSIUM CHLORIDE. [Concomitant]
     Active Substance: POTASSIUM CHLORIDE
     Dosage: 6 ML, PRN
     Route: 042
     Dates: start: 20151205, end: 20151205
  107. NIFEDIPINE. [Concomitant]
     Active Substance: NIFEDIPINE
     Dosage: 10 MG, QD
     Route: 048
     Dates: start: 20151112, end: 20151115
  108. ENEMA (SODIUM PHOSPHATE, DIBASIC\SODIUM PHOSPHATE, MONOBASIC) [Concomitant]
     Active Substance: SODIUM PHOSPHATE, DIBASIC\SODIUM PHOSPHATE, MONOBASIC
     Dosage: 60 ML, PRN
     Route: 054
     Dates: start: 20151218, end: 20151218
  109. ENEMA (SODIUM PHOSPHATE, DIBASIC\SODIUM PHOSPHATE, MONOBASIC) [Concomitant]
     Active Substance: SODIUM PHOSPHATE, DIBASIC\SODIUM PHOSPHATE, MONOBASIC
     Dosage: 60 ML, PRN
     Route: 054
     Dates: start: 20151207, end: 20151207
  110. TACROLIMUS. [Suspect]
     Active Substance: TACROLIMUS
     Dosage: 5 MG, QD
     Route: 065
     Dates: start: 20151218, end: 20151221
  111. SODIUM CHLORIDE. [Concomitant]
     Active Substance: SODIUM CHLORIDE
     Indication: ELECTROLYTE IMBALANCE
     Dosage: 500 ML, PRN
     Route: 042
     Dates: start: 20151204, end: 20151204
  112. AARAM//ALPRAZOLAM [Concomitant]
     Indication: SEDATIVE THERAPY
     Dosage: 0.4 MG, QD
     Route: 048
     Dates: start: 20150902, end: 20150908
  113. PMS-PROMETHAZINE [Concomitant]
     Indication: SEDATIVE THERAPY
     Dosage: 2 DF, TID
     Route: 048
     Dates: start: 20150902, end: 20150908
  114. PMS-PROMETHAZINE [Concomitant]
     Dosage: 2 DF, TID
     Route: 048
     Dates: start: 20151104
  115. SULFAMETHOXAZOLE [Concomitant]
     Active Substance: SULFAMETHOXAZOLE
     Indication: INFECTION PROPHYLAXIS
     Dosage: 240 MG, QD
     Route: 048
     Dates: start: 20150909
  116. DILTIAZEM HYDROCHLORIDE. [Concomitant]
     Active Substance: DILTIAZEM HYDROCHLORIDE
     Indication: BLOOD PRESSURE INCREASED
     Dosage: 30 MG, BID
     Route: 048
     Dates: start: 20150902
  117. FUROSEMIDE. [Concomitant]
     Active Substance: FUROSEMIDE
     Indication: DIURETIC THERAPY
     Dosage: 80 MG, SOS
     Route: 042
     Dates: start: 20150901, end: 20150901
  118. FUROSEMIDE. [Concomitant]
     Active Substance: FUROSEMIDE
     Dosage: 20 MG, QD
     Route: 042
     Dates: start: 20151217, end: 20151218
  119. FUROSEMIDE. [Concomitant]
     Active Substance: FUROSEMIDE
     Dosage: 80 MG, PRN
     Route: 042
     Dates: start: 20151204, end: 20151204
  120. METOCLOPRAMIDE. [Concomitant]
     Active Substance: METOCLOPRAMIDE
     Dosage: 10 MG, QD
     Route: 030
     Dates: start: 20151205, end: 20151206
  121. TEICOPLANIN [Concomitant]
     Active Substance: TEICOPLANIN
     Dosage: 200 MG, QD
     Route: 042
     Dates: start: 20151014
  122. CASPOFUNGIN ACETATE. [Concomitant]
     Active Substance: CASPOFUNGIN ACETATE
     Indication: INFECTION PROPHYLAXIS
     Dosage: 50 MG, QD
     Route: 042
     Dates: start: 20150901, end: 20150908
  123. CASPOFUNGIN ACETATE. [Concomitant]
     Active Substance: CASPOFUNGIN ACETATE
     Dosage: 50 MG, QD
     Route: 042
     Dates: start: 20151014, end: 20151014
  124. SUCRALFATE. [Concomitant]
     Active Substance: SUCRALFATE
     Indication: PROPHYLAXIS
     Dosage: 750 MG, QD
     Route: 048
     Dates: start: 20151014, end: 20151014
  125. CALCIUM GLUCONATE. [Concomitant]
     Active Substance: CALCIUM GLUCONATE
     Indication: PROPHYLAXIS
     Dosage: 3 G, QD
     Route: 042
     Dates: start: 20151104, end: 20151105
  126. CALCIUM GLUCONATE. [Concomitant]
     Active Substance: CALCIUM GLUCONATE
     Dosage: 3 G, QD
     Route: 042
     Dates: start: 20151205, end: 20151206
  127. INSULIN [Concomitant]
     Active Substance: INSULIN NOS
     Dosage: 12 IU, QD
     Route: 042
     Dates: start: 20151103, end: 20151104
  128. CLONIDINE. [Concomitant]
     Active Substance: CLONIDINE
     Indication: BLOOD PRESSURE INCREASED
     Dosage: 75 UG, QD
     Route: 048
     Dates: start: 20151113, end: 20151113
  129. MACROGOL 4000 [Concomitant]
     Active Substance: POLYETHYLENE GLYCOL 4000
     Indication: CONSTIPATION PROPHYLAXIS
     Dosage: 10 G, TID
     Route: 048
     Dates: start: 20150909
  130. GLUCOSE [Concomitant]
     Active Substance: DEXTROSE
     Indication: ELECTROLYTE SUBSTITUTION THERAPY
     Dosage: 2000 ML, QD
     Route: 042
     Dates: start: 20151204, end: 20151205
  131. ENOXAPARIN SODIUM. [Concomitant]
     Active Substance: ENOXAPARIN SODIUM
     Indication: HAEMODIALYSIS
     Dosage: 4000 IU, QD
     Route: 042
     Dates: start: 20151210, end: 20151210
  132. LEUCOGEN [Concomitant]
     Active Substance: LEUCOGEN
     Indication: LEUKOCYTOSIS
     Dosage: 40 MG, TID
     Route: 048
     Dates: start: 20151208, end: 20151216
  133. MUKOPOLYSACKARIDPOLYSULFAT [Concomitant]
     Indication: PROPHYLAXIS
     Dosage: 14 G, PRN
     Route: 065
     Dates: start: 20151214, end: 20151214
  134. BASILIXIMAB [Suspect]
     Active Substance: BASILIXIMAB
     Dosage: 20 MG, QD
     Route: 065
     Dates: start: 20151208, end: 20151208
  135. TACROLIMUS. [Suspect]
     Active Substance: TACROLIMUS
     Dosage: 3 MG, QD
     Route: 065
     Dates: start: 20160112
  136. MAGNESIN//MAGNESIUM SULFATE [Concomitant]
     Dosage: 1.6 ML, PRN
     Route: 042
     Dates: start: 20151205, end: 20151205
  137. SODIUM BICARBONATE. [Concomitant]
     Active Substance: SODIUM BICARBONATE
     Indication: PROPHYLAXIS
     Dosage: 250 ML, QD
     Route: 042
     Dates: start: 20150901, end: 20150902
  138. DILTIAZEM HYDROCHLORIDE. [Concomitant]
     Active Substance: DILTIAZEM HYDROCHLORIDE
     Dosage: 30 MG, BID
     Route: 048
     Dates: start: 20151205
  139. GANCICLOVIR. [Concomitant]
     Active Substance: GANCICLOVIR
     Indication: INFECTION PROPHYLAXIS
     Dosage: 500 MG, TID
     Route: 048
     Dates: start: 20150909
  140. CASPOFUNGIN ACETATE. [Concomitant]
     Active Substance: CASPOFUNGIN ACETATE
     Dosage: 50 MG, PRN
     Route: 042
     Dates: start: 20151204, end: 20151204
  141. SUCRALFATE. [Concomitant]
     Active Substance: SUCRALFATE
     Dosage: 750 MG, QD
     Route: 048
     Dates: start: 20151103, end: 20151103
  142. CALCIUM GLUCONATE. [Concomitant]
     Active Substance: CALCIUM GLUCONATE
     Indication: NUTRITIONAL SUPPLEMENTATION
     Dosage: 3000 MG, QD
     Route: 042
     Dates: start: 20151015, end: 20151016
  143. IMIPENEM/CILASTATINE [Concomitant]
     Active Substance: CILASTATIN SODIUM\IMIPENEM
     Indication: INFECTION PROPHYLAXIS
     Dosage: 500 MG, Q8H
     Route: 042
     Dates: start: 20150901, end: 20150908
  144. HEPATITIS B IMMUNE GLOBULIN [Concomitant]
     Active Substance: HUMAN HEPATITIS B VIRUS IMMUNE GLOBULIN
     Indication: ANTIVIRAL PROPHYLAXIS
     Dosage: 400 IU, QD
     Route: 030
     Dates: start: 20150903, end: 20150903
  145. HEPATITIS B IMMUNE GLOBULIN [Concomitant]
     Active Substance: HUMAN HEPATITIS B VIRUS IMMUNE GLOBULIN
     Dosage: 400 IU, QD
     Route: 030
     Dates: start: 20151205, end: 20151205
  146. POTASSIUM CHLORIDE. [Concomitant]
     Active Substance: POTASSIUM CHLORIDE
     Dosage: 12 ML, QD
     Route: 042
     Dates: start: 20151103, end: 20151104
  147. POTASSIUM CHLORIDE. [Concomitant]
     Active Substance: POTASSIUM CHLORIDE
     Dosage: 18 ML, QD
     Route: 042
     Dates: start: 20151106, end: 20151106
  148. AMIKACIN. [Concomitant]
     Active Substance: AMIKACIN
     Indication: INFECTION PROPHYLAXIS
     Dosage: 400 MG, QD
     Route: 030
     Dates: start: 20151014, end: 20151014
  149. AMIKACIN. [Concomitant]
     Active Substance: AMIKACIN
     Dosage: 400 MG, SOS
     Route: 042
     Dates: start: 20151103, end: 20151103
  150. DIAZEPAM. [Concomitant]
     Active Substance: DIAZEPAM
     Indication: SEDATION
     Dosage: 5 MG, QD
     Route: 048
     Dates: start: 20151014, end: 20151014
  151. HEPARIN SODIUM. [Concomitant]
     Active Substance: HEPARIN SODIUM
     Dosage: 12500 IU, W1D3
     Route: 042
     Dates: start: 20151207, end: 20151219
  152. CASPOFUNGIN ACETATE. [Concomitant]
     Active Substance: CASPOFUNGIN ACETATE
     Dosage: 50 MG, QD
     Route: 042
     Dates: start: 20151103, end: 20151114
  153. SUCRALFATE. [Concomitant]
     Active Substance: SUCRALFATE
     Indication: ANTACID THERAPY
     Dosage: 750 MG, QD
     Route: 048
     Dates: start: 20150901, end: 20150901
  154. IMIPENEM/CILASTATINE [Concomitant]
     Active Substance: CILASTATIN SODIUM\IMIPENEM
     Dosage: 500 MG, PRN
     Route: 042
     Dates: start: 20151204, end: 20151204
  155. IMIPENEM/CILASTATINE [Concomitant]
     Active Substance: CILASTATIN SODIUM\IMIPENEM
     Dosage: 500 MG, BID
     Route: 042
     Dates: end: 20151219
  156. HEPATITIS B IMMUNE GLOBULIN [Concomitant]
     Active Substance: HUMAN HEPATITIS B VIRUS IMMUNE GLOBULIN
     Dosage: 400 IU, QD
     Route: 030
     Dates: start: 20151104, end: 20151104
  157. POTASSIUM CHLORIDE. [Concomitant]
     Active Substance: POTASSIUM CHLORIDE
     Indication: ELECTROLYTE IMBALANCE
     Dosage: 6 ML, QD
     Route: 042
     Dates: start: 20151014, end: 20151014
  158. POTASSIUM CHLORIDE. [Concomitant]
     Active Substance: POTASSIUM CHLORIDE
     Dosage: 12 ML, PRN
     Route: 042
     Dates: start: 20151204, end: 20151205
  159. MUCOSOLVAN [Concomitant]
     Active Substance: AMBROXOL HYDROCHLORIDE
     Indication: SPUTUM RETENTION
     Dosage: 30 MG, TID
     Route: 048
     Dates: start: 20151105
  160. ENEMA (SODIUM PHOSPHATE, DIBASIC\SODIUM PHOSPHATE, MONOBASIC) [Concomitant]
     Active Substance: SODIUM PHOSPHATE, DIBASIC\SODIUM PHOSPHATE, MONOBASIC
     Indication: CONSTIPATION PROPHYLAXIS
     Dosage: 40 ML, PRN
     Route: 054
     Dates: start: 20151217, end: 20151217

REACTIONS (17)
  - Blood glucose increased [Unknown]
  - Abdominal distension [Recovering/Resolving]
  - Abdominal pain [Recovering/Resolving]
  - Blood urea increased [Recovering/Resolving]
  - Bilirubin conjugated increased [Unknown]
  - Delayed graft function [Recovered/Resolved with Sequelae]
  - Condition aggravated [Recovered/Resolved with Sequelae]
  - Incision site pain [Recovering/Resolving]
  - Blood creatinine decreased [Recovered/Resolved with Sequelae]
  - Effusion [Recovering/Resolving]
  - Constipation [Recovering/Resolving]
  - Hepatic cyst [Recovering/Resolving]
  - Epididymal disorder [Recovering/Resolving]
  - Lymphocyte count decreased [Unknown]
  - Blood bilirubin increased [Unknown]
  - Procedural pain [Recovering/Resolving]
  - Renal cyst [Recovering/Resolving]

NARRATIVE: CASE EVENT DATE: 20151205
